FAERS Safety Report 12692877 (Version 1)
Quarter: 2016Q3

REPORT INFORMATION
  Report Type: Spontaneous
  Country: BR (occurrence: BR)
  Receive Date: 20160829
  Receipt Date: 20160829
  Transmission Date: 20161109
  Serious: Yes (Other)
  Sender: FDA-Public Use
  Company Number: BR-CIPLA LTD.-2016BR17681

PATIENT

DRUGS (4)
  1. LAMOTRIGINE. [Suspect]
     Active Substance: LAMOTRIGINE
     Indication: EPILEPSY
     Dosage: 100 MG, 12/12 HOURS FOR 9 MONTHS
     Route: 065
  2. VALPROIC ACID. [Interacting]
     Active Substance: VALPROIC ACID
     Indication: EPILEPSY
     Dosage: 1200 MG, (300MG IN THE MORNING AND 900MG AT NIGHT) FOR 9 MONTHS
     Route: 065
  3. PHENYTOIN. [Interacting]
     Active Substance: PHENYTOIN
     Dosage: 150 MG, 12/12 HOURS
     Route: 048
  4. PHENYTOIN. [Interacting]
     Active Substance: PHENYTOIN
     Indication: EPILEPSY
     Dosage: 200 MG, (100 MG, COMPOUNDED CAPSULES, 2 CAPSULES 12/12 HOURS) FOR 1 MONTH
     Route: 048

REACTIONS (6)
  - Cerebral disorder [Recovered/Resolved]
  - Nausea [Unknown]
  - Cerebellar syndrome [Recovered/Resolved]
  - Vomiting [Unknown]
  - Drug interaction [Unknown]
  - Toxicity to various agents [Recovered/Resolved]
